FAERS Safety Report 5922337-7 (Version None)
Quarter: 2008Q3

REPORT INFORMATION
  Report Type: 
  Country: None (occurrence: None)
  Receive Date: 20080909
  Receipt Date: 20080211
  Transmission Date: 20090109
  Serious: Yes (Other)
  Sender: FDA-Public Use
  Company Number: 163-20785-07120432

PATIENT
  Age: 54 Year
  Sex: Female
  Weight: 56.6996 kg

DRUGS (4)
  1. THALOMID [Suspect]
     Indication: MULTIPLE MYELOMA
     Dosage: 50 MG, 1 IN 1 D, ORAL ; 100 MG, 2 IN 1 D, ORAL
     Route: 048
     Dates: start: 20070720, end: 20070801
  2. THALOMID [Suspect]
     Indication: MULTIPLE MYELOMA
     Dosage: 50 MG, 1 IN 1 D, ORAL ; 100 MG, 2 IN 1 D, ORAL
     Route: 048
     Dates: start: 20070817, end: 20071101
  3. DEXAMETHASONE TAB [Suspect]
     Indication: DRUG USE FOR UNKNOWN INDICATION
     Dosage: 20 MG, WEEKLY, ORAL
     Route: 048
  4. PROCRIT [Concomitant]

REACTIONS (1)
  - SYNCOPE [None]
